FAERS Safety Report 8066786-2 (Version None)
Quarter: 2011Q4

REPORT INFORMATION
  Report Type: 
  Country: None (occurrence: None)
  Receive Date: 20111221
  Receipt Date: 20110601
  Transmission Date: 20120403
  Serious: Yes (Hospitalization, Other)
  Sender: FDA-Public Use
  Company Number: PHHY2010US85281

PATIENT
  Age: 69 Year
  Sex: Female
  Weight: 78 kg

DRUGS (8)
  1. VICODIN [Concomitant]
  2. EXJADE [Suspect]
     Indication: IRON OVERLOAD
     Dosage: 1250 MG, QD, ORAL, 1500 MG, QD, ORAL
     Route: 048
     Dates: start: 20070302
  3. EXJADE [Suspect]
     Indication: NEOPLASM
     Dosage: 1250 MG, QD, ORAL, 1500 MG, QD, ORAL
     Route: 048
     Dates: start: 20070302
  4. EXJADE [Suspect]
     Indication: TRANSFUSION
     Dosage: 1250 MG, QD, ORAL, 1500 MG, QD, ORAL
     Route: 048
     Dates: start: 20070302
  5. EXJADE [Suspect]
     Indication: IRON OVERLOAD
     Dosage: 1250 MG, QD, ORAL, 1500 MG, QD, ORAL
     Route: 048
     Dates: start: 20070328
  6. EXJADE [Suspect]
     Indication: NEOPLASM
     Dosage: 1250 MG, QD, ORAL, 1500 MG, QD, ORAL
     Route: 048
     Dates: start: 20070328
  7. EXJADE [Suspect]
     Indication: TRANSFUSION
     Dosage: 1250 MG, QD, ORAL, 1500 MG, QD, ORAL
     Route: 048
     Dates: start: 20070328
  8. ATIVAN [Concomitant]

REACTIONS (7)
  - NEPHROPATHY TOXIC [None]
  - HEPATITIS TOXIC [None]
  - DEHYDRATION [None]
  - RENAL FAILURE [None]
  - LETHARGY [None]
  - CONFUSIONAL STATE [None]
  - URINE OUTPUT DECREASED [None]
